FAERS Safety Report 8847232 (Version 1)
Quarter: 2012Q4

REPORT INFORMATION
  Report Type: Spontaneous
  Country: US (occurrence: None)
  Receive Date: 20121017
  Receipt Date: 20121017
  Transmission Date: 20130627
  Serious: Yes (Other)
  Sender: FDA-Public Use
  Company Number: None

PATIENT
  Age: 22 Year
  Sex: Male
  Weight: 78.02 kg

DRUGS (6)
  1. FELBAMATE [Suspect]
     Dosage: 600mg 3 tabs B^fast  
2 1/2 tabs  3:00p and bedtime
     Route: 048
     Dates: start: 20090312
  2. KEPPRA [Concomitant]
  3. DEPAKOTE ER [Concomitant]
  4. ONFI [Concomitant]
  5. DIASTAT [Concomitant]
  6. KLONOPIN [Concomitant]

REACTIONS (3)
  - Product substitution issue [None]
  - Convulsion [None]
  - Condition aggravated [None]
